FAERS Safety Report 7447004-2 (Version None)
Quarter: 2011Q2

REPORT INFORMATION
  Report Type: 
  Country: None (occurrence: None)
  Receive Date: 20110419
  Receipt Date: 20110406
  Transmission Date: 20111010
  Serious: Yes (Hospitalization)
  Sender: FDA-Public Use
  Company Number: 2011SP000809

PATIENT
  Age: 75 Year
  Sex: Female
  Weight: 69.4 kg

DRUGS (14)
  1. LEXAPRO [Concomitant]
  2. OXYGEN [Concomitant]
  3. BUDESONIDE [Concomitant]
  4. FERREX [Concomitant]
  5. ASPIRIN [Concomitant]
  6. ALBUTEROL [Concomitant]
  7. SYNTHROID [Concomitant]
  8. VITAMINS [Concomitant]
  9. BROVANA [Suspect]
     Indication: CHRONIC OBSTRUCTIVE PULMONARY DISEASE
     Dosage: 15 UG/2ML;BID;INHALATION
     Route: 055
  10. PROAIR HFA [Concomitant]
  11. VITAMIN B12 /00056201/ [Concomitant]
  12. LEVOXYL [Concomitant]
  13. LISINOPRIL [Concomitant]
  14. ALPRAZOLAM [Concomitant]

REACTIONS (29)
  - INCORRECT DOSE ADMINISTERED [None]
  - PEPTIC ULCER [None]
  - ABDOMINAL PAIN [None]
  - BACK PAIN [None]
  - DYSPNOEA [None]
  - BLOOD UREA INCREASED [None]
  - MESENTERITIS [None]
  - MEDICATION ERROR [None]
  - ABDOMINAL DISTENSION [None]
  - HYPERGLYCAEMIA [None]
  - BLOOD SODIUM DECREASED [None]
  - SINUS TACHYCARDIA [None]
  - DRUG ADMINISTRATION ERROR [None]
  - FLANK PAIN [None]
  - DEHYDRATION [None]
  - CHEST PAIN [None]
  - CHRONIC OBSTRUCTIVE PULMONARY DISEASE [None]
  - PNEUMONIA [None]
  - FAECES HARD [None]
  - ALANINE AMINOTRANSFERASE INCREASED [None]
  - IRON DEFICIENCY ANAEMIA [None]
  - WHITE BLOOD CELL COUNT INCREASED [None]
  - ASPARTATE AMINOTRANSFERASE INCREASED [None]
  - RESPIRATORY FAILURE [None]
  - FAECES DISCOLOURED [None]
  - COUGH [None]
  - DIARRHOEA [None]
  - HYPOTENSION [None]
  - VENTRICULAR EXTRASYSTOLES [None]
